FAERS Safety Report 23183694 (Version 1)
Quarter: 2023Q4

REPORT INFORMATION
  Report Type: Spontaneous
  Country: None (occurrence: FR)
  Receive Date: 20231114
  Receipt Date: 20231114
  Transmission Date: 20240110
  Serious: Yes (Hospitalization)
  Sender: FDA-Public Use
  Company Number: FR-B.Braun Medical Inc.-2148263

PATIENT
  Age: 71 Year
  Sex: Male
  Weight: 78 kg

DRUGS (6)
  1. ACETAMINOPHEN [Suspect]
     Active Substance: ACETAMINOPHEN
     Indication: Poisoning
     Route: 048
  2. FOLIC ACID [Suspect]
     Active Substance: FOLIC ACID
  3. DIAZEPAM [Suspect]
     Active Substance: DIAZEPAM
  4. MIANSERIN HYDROCHLORIDE [Suspect]
     Active Substance: MIANSERIN HYDROCHLORIDE
  5. TRAMADOL [Suspect]
     Active Substance: TRAMADOL\TRAMADOL HYDROCHLORIDE
  6. COLCHICINE [Suspect]
     Active Substance: COLCHICINE

REACTIONS (5)
  - Off label use [None]
  - Psychomotor skills impaired [None]
  - Hypotension [None]
  - Hepatocellular injury [None]
  - Neutropenia [None]
